FAERS Safety Report 7326604-4 (Version None)
Quarter: 2011Q1

REPORT INFORMATION
  Report Type: 
  Country: None (occurrence: None)
  Receive Date: 20110302
  Receipt Date: 20110228
  Transmission Date: 20110831
  Serious: Yes (Other)
  Sender: FDA-Public Use
  Company Number: US-CEPHALON-2010004396

PATIENT
  Sex: Female
  Weight: 68 kg

DRUGS (8)
  1. PROVIGIL [Suspect]
     Indication: NARCOLEPSY
     Route: 048
     Dates: start: 20081201
  2. CLONAZEPAM [Concomitant]
     Indication: ANXIETY
     Dates: start: 20090801
  3. ZOFRAN [Concomitant]
     Indication: NAUSEA
     Dates: start: 20100501
  4. WELLBUTRIN [Concomitant]
     Indication: DEPRESSION
     Dates: start: 20040101
  5. LAMICTAL [Concomitant]
     Indication: BIPOLAR DISORDER
     Dates: start: 20080101
  6. NATELLE ONE [Concomitant]
     Indication: SUPPLEMENTATION THERAPY
     Dates: start: 20100201
  7. NEXIUM [Concomitant]
     Indication: DYSPEPSIA
     Dates: start: 20080101
  8. ACYCLOVIR [Concomitant]
     Indication: HERPES VIRUS INFECTION
     Dates: start: 20080201

REACTIONS (2)
  - DRUG EXPOSURE DURING PREGNANCY [None]
  - FOETAL HEART RATE DECREASED [None]
